FAERS Safety Report 5275492-9 (Version None)
Quarter: 2007Q1

REPORT INFORMATION
  Report Type: 
  Country: None (occurrence: None)
  Receive Date: 20070326
  Receipt Date: 20070316
  Transmission Date: 20070707
  Serious: Yes (Other)
  Sender: FDA-Public Use
  Company Number: US-AMGEN-US215299

PATIENT
  Sex: Male

DRUGS (6)
  1. ARANESP [Suspect]
     Indication: ANAEMIA OF MALIGNANT DISEASE
     Route: 065
     Dates: start: 20070101
  2. ISORBID [Concomitant]
  3. RANITIDINE [Concomitant]
  4. GEMFIBROZIL [Concomitant]
  5. LISINOPRIL [Concomitant]
  6. TOPROL-XL [Concomitant]

REACTIONS (5)
  - ANGIOPLASTY [None]
  - COUGH [None]
  - POLLAKIURIA [None]
  - RHINORRHOEA [None]
  - URINE FLOW DECREASED [None]
